FAERS Safety Report 9477329 (Version 3)
Quarter: 2013Q3

REPORT INFORMATION
  Report Type: Spontaneous
  Country: FR (occurrence: FR)
  Receive Date: 20130826
  Receipt Date: 20130910
  Transmission Date: 20140515
  Serious: Yes (Hospitalization, Other)
  Sender: FDA-Public Use
  Company Number: FR-ROCHE-1258879

PATIENT
  Age: 72 Year
  Sex: Female
  Weight: 75 kg

DRUGS (7)
  1. ZELBORAF [Suspect]
     Indication: LUNG NEOPLASM MALIGNANT
     Route: 048
     Dates: start: 20130714, end: 20130806
  2. ZELBORAF [Suspect]
     Route: 048
     Dates: start: 20130814
  3. LANTUS [Concomitant]
     Indication: DIABETES MELLITUS
     Route: 058
  4. INNOHEP [Concomitant]
     Route: 058
  5. IMOVANE [Concomitant]
     Indication: INSOMNIA
     Route: 048
  6. CARBOPLATIN [Concomitant]
  7. ALIMTA [Concomitant]

REACTIONS (2)
  - Hepatic failure [Not Recovered/Not Resolved]
  - Hyponatraemia [Recovering/Resolving]
